FAERS Safety Report 8846156 (Version 2)
Quarter: 2013Q1

REPORT INFORMATION
  Report Type: Spontaneous
  Country: BR (occurrence: BR)
  Receive Date: 20121017
  Receipt Date: 20130220
  Transmission Date: 20140127
  Serious: Yes (Other)
  Sender: FDA-Public Use
  Company Number: PHHY2012BR092362

PATIENT
  Sex: Female

DRUGS (6)
  1. DIOVAN AMLO FIX [Suspect]
     Indication: HYPERTENSION
     Dosage: 1 DF (160 MG VALS  AND 5 MG AMLO), QD (AT NIGHT)
     Route: 048
  2. DIOVAN HCT [Suspect]
     Indication: HYPERTENSION
     Dosage: 1 DF (160 MG VALS AND12.5 MG HCT), QD (IN THE MORNING)
     Route: 048
  3. DIOVAN HCT [Suspect]
     Dosage: 2 DF (160 MG VALS/12.5 MG HCT), DAILY
     Route: 048
  4. RANITIDINE [Concomitant]
     Indication: GASTRITIS PROPHYLAXIS
     Dosage: 1 DF, BID
  5. MELOXICAM [Concomitant]
     Indication: INFLAMMATION
     Dosage: 1 DF, BID
  6. PARACETAMOL [Concomitant]
     Indication: INFLAMMATORY PAIN
     Dosage: 1 DF, BID

REACTIONS (3)
  - Bursitis [Not Recovered/Not Resolved]
  - Pain [Not Recovered/Not Resolved]
  - Synovial cyst [Recovering/Resolving]
